FAERS Safety Report 14653518 (Version 1)
Quarter: 2018Q1

REPORT INFORMATION
  Report Type: Spontaneous
  Country: BR (occurrence: BR)
  Receive Date: 20180319
  Receipt Date: 20180319
  Transmission Date: 20180509
  Serious: Yes (Other)
  Sender: FDA-Public Use
  Company Number: BR-ABBVIE-18P-020-2293267-00

PATIENT
  Sex: Female
  Weight: 47 kg

DRUGS (5)
  1. VITAMIN D [Concomitant]
     Active Substance: CHOLECALCIFEROL
     Indication: VITAMIN SUPPLEMENTATION
     Dosage: START DATE: 4 OR 5 YEARS AGO. STATUS OF USE: CONTINUOUS USE
     Route: 048
  2. DEPAKENE [Suspect]
     Active Substance: VALPROIC ACID
     Dosage: 5 ML;(2.5 ML IN THE MORNING / AT NIGHT). START DATE NOT INFORMED
     Route: 048
     Dates: end: 20180311
  3. DEPAKENE [Suspect]
     Active Substance: VALPROIC ACID
     Dosage: MEDICATION RESUMED IN 2014
     Route: 065
     Dates: start: 2014
  4. GARDENAL [Concomitant]
     Active Substance: PHENOBARBITAL
     Indication: MYOCLONUS
     Dosage: 100DROP;(30 DROPS IN THE MORNING/AT NIGHT).START DATE:UNKNOWN,STATUS OF USE:CONTINUOUS USE
     Route: 048
  5. DEPAKENE [Suspect]
     Active Substance: VALPROIC ACID
     Indication: MYOCLONUS
     Dosage: START DATE: ^A FEW YEARS AGO^ (BEFORE 2014).
     Route: 065

REACTIONS (7)
  - Product use in unapproved indication [Unknown]
  - Weight increased [Unknown]
  - Dementia Alzheimer^s type [Unknown]
  - Drug dose omission [Unknown]
  - Off label use [Unknown]
  - Therapeutic response unexpected [Unknown]
  - Product quality issue [Unknown]
